FAERS Safety Report 9137462 (Version 1)
Quarter: 2013Q1

REPORT INFORMATION
  Report Type: Spontaneous
  Country: US (occurrence: US)
  Receive Date: 20130219
  Receipt Date: 20130219
  Transmission Date: 20140127
  Serious: No
  Sender: FDA-Public Use
  Company Number: US-BRISTOL-MYERS SQUIBB COMPANY-16828816

PATIENT
  Age: 40 Year
  Sex: Female

DRUGS (14)
  1. ORENCIA FOR INJ [Suspect]
     Indication: RHEUMATOID ARTHRITIS
     Route: 058
  2. LEFLUNOMIDE [Concomitant]
  3. PLAQUENIL [Concomitant]
  4. PREDNISONE [Concomitant]
  5. FOLIC ACID [Concomitant]
  6. POTASSIUM [Concomitant]
  7. PROPANOLOL HYDROCHLORIDE [Concomitant]
  8. CYMBALTA [Concomitant]
  9. CYCLOBENZAPRINE [Concomitant]
  10. NASONEX [Concomitant]
  11. MULTIVITAMIN [Concomitant]
  12. ACTONEL [Concomitant]
  13. VITAMIN C [Concomitant]
  14. LEVONORGESTREL + ETHINYLESTRADIOL [Concomitant]

REACTIONS (2)
  - Headache [Unknown]
  - Dyspepsia [Unknown]
